FAERS Safety Report 7510810-X (Version None)
Quarter: 2011Q2

REPORT INFORMATION
  Report Type: 
  Country: None (occurrence: None)
  Receive Date: 20110531
  Receipt Date: 20110523
  Transmission Date: 20111010
  Serious: Yes (Other)
  Sender: FDA-Public Use
  Company Number: AT-BRISTOL-MYERS SQUIBB COMPANY-15772817

PATIENT
  Age: 36 Year
  Sex: Male

DRUGS (2)
  1. ABILIFY [Suspect]
     Indication: MANIA
     Dosage: IN THE MORNINGS; DOSE INCREASED TO 15MG
     Dates: start: 20090501
  2. CLOZAPINE [Suspect]
     Indication: MANIA
     Dosage: IN THE EVENING

REACTIONS (3)
  - MANIA [None]
  - APATHY [None]
  - DECREASED APPETITE [None]
